FAERS Safety Report 13727443 (Version 1)
Quarter: 2017Q3

REPORT INFORMATION
  Report Type: Spontaneous
  Country: FR (occurrence: FR)
  Receive Date: 20170707
  Receipt Date: 20170707
  Transmission Date: 20171127
  Serious: Yes (Hospitalization, Disabling)
  Sender: FDA-Public Use
  Company Number: FR-BAYER-2017-128913

PATIENT
  Age: 31 Year
  Sex: Female

DRUGS (1)
  1. MIRENA [Suspect]
     Active Substance: LEVONORGESTREL
     Indication: CHEMICAL CONTRACEPTION
     Dosage: 20 MCG/24HR, CONT
     Route: 015
     Dates: start: 20131205, end: 20170622

REACTIONS (13)
  - Myalgia [Not Recovered/Not Resolved]
  - Weight increased [Not Recovered/Not Resolved]
  - Fibromyalgia [Not Recovered/Not Resolved]
  - Diffuse alopecia [Not Recovered/Not Resolved]
  - Abdominal distension [Not Recovered/Not Resolved]
  - Ovarian cyst [Not Recovered/Not Resolved]
  - Tachycardia [Not Recovered/Not Resolved]
  - Fatigue [Not Recovered/Not Resolved]
  - Hypertrichosis [Not Recovered/Not Resolved]
  - Vaginal discharge [Not Recovered/Not Resolved]
  - Anxiety [Not Recovered/Not Resolved]
  - Acne [Not Recovered/Not Resolved]
  - Headache [Not Recovered/Not Resolved]

NARRATIVE: CASE EVENT DATE: 201404
